FAERS Safety Report 20450388 (Version 2)
Quarter: 2022Q1

REPORT INFORMATION
  Report Type: Spontaneous
  Country: US (occurrence: US)
  Receive Date: 20220209
  Receipt Date: 20220224
  Transmission Date: 20220423
  Serious: No
  Sender: FDA-Public Use
  Company Number: US-ORGANON-O2201USA002149

PATIENT
  Age: 20 Year
  Sex: Female
  Weight: 61.2 kg

DRUGS (2)
  1. NEXPLANON [Suspect]
     Active Substance: ETONOGESTREL
     Indication: Contraception
     Dosage: 1 DOSAGE FORM (LEFT ARM)
     Route: 059
     Dates: end: 20220113
  2. NEXPLANON [Suspect]
     Active Substance: ETONOGESTREL
     Dosage: 1 DOSAGE FORM (RIGHT ARM)
     Route: 059

REACTIONS (7)
  - Muscle spasms [Not Recovered/Not Resolved]
  - Pain [Not Recovered/Not Resolved]
  - Complication of device removal [Recovered/Resolved]
  - Device breakage [Recovered/Resolved]
  - Device placement issue [Unknown]
  - Overdose [Unknown]
  - Device use issue [Unknown]

NARRATIVE: CASE EVENT DATE: 20220120
